FAERS Safety Report 19195830 (Version 1)
Quarter: 2021Q2

REPORT INFORMATION
  Report Type: Spontaneous
  Country: AU (occurrence: AU)
  Receive Date: 20210429
  Receipt Date: 20210429
  Transmission Date: 20210717
  Serious: Yes (Other)
  Sender: FDA-Public Use
  Company Number: NVSC2021AU093446

PATIENT
  Sex: Female

DRUGS (1)
  1. FINGOLIMOD. [Suspect]
     Active Substance: FINGOLIMOD
     Indication: PRODUCT USED FOR UNKNOWN INDICATION
     Dosage: EVERY 2 DAY FREQUENCY
     Route: 065

REACTIONS (6)
  - Fatigue [Unknown]
  - Multiple sclerosis [Unknown]
  - Paraesthesia [Unknown]
  - Vision blurred [Unknown]
  - Lymphopenia [Unknown]
  - Inappropriate schedule of product administration [Unknown]
